FAERS Safety Report 7142213-4 (Version None)
Quarter: 2010Q4

REPORT INFORMATION
  Report Type: 
  Country: None (occurrence: None)
  Receive Date: 20101207
  Receipt Date: 20101202
  Transmission Date: 20110411
  Serious: Yes (Hospitalization)
  Sender: FDA-Public Use
  Company Number: JP-PFIZER INC-2010121186

PATIENT
  Age: 73 Year
  Sex: Male

DRUGS (2)
  1. FARMORUBICIN [Suspect]
     Indication: HEPATIC NEOPLASM MALIGNANT
     Route: 013
  2. LIPIODOL [Concomitant]
     Route: 013

REACTIONS (1)
  - PANNICULITIS [None]
